FAERS Safety Report 19953094 (Version 1)
Quarter: 2021Q4

REPORT INFORMATION
  Report Type: Spontaneous
  Country: US (occurrence: US)
  Receive Date: 20211013
  Receipt Date: 20211013
  Transmission Date: 20220303
  Serious: Yes (Other)
  Sender: FDA-Public Use
  Company Number: None

PATIENT
  Age: 30 Year
  Sex: Male
  Weight: 85.5 kg

DRUGS (3)
  1. ZOLPIDEM [Suspect]
     Active Substance: ZOLPIDEM TARTRATE
     Dosage: ?          QUANTITY:30 TABLET(S);
     Route: 048
  2. ADDERALL [Concomitant]
     Active Substance: AMPHETAMINE ASPARTATE\AMPHETAMINE SULFATE\DEXTROAMPHETAMINE SACCHARATE\DEXTROAMPHETAMINE SULFATE
  3. UNISOM SLEEPTABS [Concomitant]
     Active Substance: DOXYLAMINE SUCCINATE

REACTIONS (9)
  - Manufacturing issue [None]
  - Drug ineffective [None]
  - Manufacturing materials issue [None]
  - Headache [None]
  - Nightmare [None]
  - Insomnia [None]
  - Impaired work ability [None]
  - Educational problem [None]
  - Mental disorder [None]

NARRATIVE: CASE EVENT DATE: 20210915
